FAERS Safety Report 5256634-8 (Version None)
Quarter: 2007Q1

REPORT INFORMATION
  Report Type: 
  Country: None (occurrence: None)
  Receive Date: 20070302
  Receipt Date: 20070221
  Transmission Date: 20070707
  Serious: Yes (Hospitalization)
  Sender: FDA-Public Use
  Company Number: 163-20785-06100857

PATIENT
  Age: 71 Year
  Sex: Female

DRUGS (6)
  1. THALOMID [Suspect]
     Indication: MYELOFIBROSIS
     Dosage: 100 MG, 1 IN 1 D, ORAL
     Route: 048
     Dates: start: 20030901, end: 20070124
  2. PEPCID [Concomitant]
  3. PERMARON (ESTROGENS CONJUGATED) [Concomitant]
  4. DIGOXIN [Concomitant]
  5. LOPRESSOR [Concomitant]
  6. ZOCOR [Concomitant]

REACTIONS (3)
  - CARDIAC DISORDER [None]
  - HAEMOGLOBIN DECREASED [None]
  - SOMNOLENCE [None]
